FAERS Safety Report 20535034 (Version 2)
Quarter: 2022Q2

REPORT INFORMATION
  Report Type: Spontaneous
  Country: US (occurrence: US)
  Receive Date: 20220302
  Receipt Date: 20220405
  Transmission Date: 20220721
  Serious: Yes (Other)
  Sender: FDA-Public Use
  Company Number: US-CELLTRION INC.-2022US002316

PATIENT

DRUGS (2)
  1. TRUXIMA [Suspect]
     Active Substance: RITUXIMAB-ABBS
     Indication: Breast cancer female
     Dosage: 660 MG EVERY 21 DAYS
     Dates: start: 20210817
  2. TRUXIMA [Suspect]
     Active Substance: RITUXIMAB-ABBS
     Dosage: 660 MG EVERY 21 DAYS
     Dates: start: 20210907

REACTIONS (2)
  - Breast cancer female [Unknown]
  - Off label use [Unknown]
